FAERS Safety Report 21986822 (Version 2)
Quarter: 2023Q2

REPORT INFORMATION
  Report Type: Other
  Country: GB (occurrence: None)
  Receive Date: 20230213
  Receipt Date: 20230401
  Transmission Date: 20230722
  Serious: Yes (Hospitalization, Other)
  Sender: FDA-Public Use
  Company Number: GB-ROCHE-3283360

PATIENT
  Sex: Male

DRUGS (1)
  1. ESBRIET [Suspect]
     Active Substance: PIRFENIDONE
     Indication: Product used for unknown indication
     Route: 065
     Dates: start: 202109

REACTIONS (4)
  - Blood magnesium abnormal [Unknown]
  - Cardiac dysfunction [Unknown]
  - Peripheral swelling [Unknown]
  - Blood magnesium decreased [Unknown]
